FAERS Safety Report 9625026 (Version 2)
Quarter: 2013Q4

REPORT INFORMATION
  Report Type: Report from Study
  Country: DE (occurrence: DE)
  Receive Date: 20131016
  Receipt Date: 20131108
  Transmission Date: 20140711
  Serious: Yes (Other)
  Sender: FDA-Public Use
  Company Number: DE-ROCHE-1289571

PATIENT
  Sex: 0

DRUGS (1)
  1. RANIBIZUMAB [Suspect]
     Indication: DIABETIC RETINAL OEDEMA
     Route: 050

REACTIONS (6)
  - Cataract [Unknown]
  - Eye pain [Unknown]
  - Erythema [Unknown]
  - Pruritus [Unknown]
  - Subarachnoid haemorrhage [Unknown]
  - Diabetic retinal oedema [Unknown]
